FAERS Safety Report 5455254-X (Version None)
Quarter: 2007Q3

REPORT INFORMATION
  Report Type: 
  Country: None (occurrence: None)
  Receive Date: 20070918
  Receipt Date: 20070828
  Transmission Date: 20080115
  Serious: No
  Sender: FDA-Public Use
  Company Number: US-JNJFOC-20070700527

PATIENT
  Sex: Male

DRUGS (8)
  1. INVEGA [Suspect]
     Indication: BIPOLAR I DISORDER
     Route: 048
  2. INVEGA [Suspect]
     Indication: SCHIZOAFFECTIVE DISORDER
     Route: 048
  3. STELAZINE [Concomitant]
     Indication: SCHIZOAFFECTIVE DISORDER
     Route: 048
  4. ESKALITH [Concomitant]
     Indication: AFFECTIVE DISORDER
     Route: 048
  5. SEROQUEL [Concomitant]
     Indication: PSYCHOTIC DISORDER
     Route: 048
  6. CYMBALTA [Concomitant]
     Indication: ANXIETY
  7. CYMBALTA [Concomitant]
     Indication: DEPRESSION
  8. KLONOPIN [Concomitant]

REACTIONS (5)
  - DRUG INEFFECTIVE [None]
  - INSOMNIA [None]
  - MUSCLE TIGHTNESS [None]
  - POOR QUALITY SLEEP [None]
  - TREMOR [None]
